FAERS Safety Report 4318807-8 (Version None)
Quarter: 2004Q1

REPORT INFORMATION
  Report Type: 
  Country: None (occurrence: None)
  Receive Date: 20040318
  Receipt Date: 20040311
  Transmission Date: 20041129
  Serious: Yes (Hospitalization)
  Sender: FDA-Public Use
  Company Number: FR-GLAXOSMITHKLINE-B0326384A

PATIENT
  Age: 91 Year
  Sex: Female

DRUGS (5)
  1. DEROXAT [Suspect]
     Route: 048
     Dates: start: 20031223, end: 20031226
  2. ALDACTAZINE [Suspect]
     Route: 048
     Dates: end: 20031226
  3. KENZEN [Concomitant]
     Route: 048
  4. DIGOXIN [Concomitant]
     Route: 065
  5. ASPIRIN [Concomitant]
     Route: 065

REACTIONS (2)
  - COMA [None]
  - HYPONATRAEMIA [None]
